FAERS Safety Report 21505501 (Version 1)
Quarter: 2022Q4

REPORT INFORMATION
  Report Type: Spontaneous
  Country: AU (occurrence: AU)
  Receive Date: 20221026
  Receipt Date: 20221026
  Transmission Date: 20230113
  Serious: Yes (Other)
  Sender: FDA-Public Use
  Company Number: AU-BAXTER-2022BAX022280

PATIENT
  Sex: Female

DRUGS (8)
  1. DOXORUBICIN [Suspect]
     Active Substance: DOXORUBICIN
     Indication: Follicular lymphoma
     Dosage: R-CHOP , 6 CYCLES WITH CR
     Route: 065
     Dates: start: 2011
  2. CYCLOPHOSPHAMIDE [Suspect]
     Active Substance: CYCLOPHOSPHAMIDE
     Indication: Follicular lymphoma
     Dosage: R-CHOP , 6 CYCLES WITH CR
     Route: 065
     Dates: start: 2011
  3. RITUXIMAB [Suspect]
     Active Substance: RITUXIMAB
     Indication: Follicular lymphoma
     Dosage: R-CHOP , 6 CYCLES WITH CR
     Route: 065
     Dates: start: 2011
  4. VINCRISTINE [Suspect]
     Active Substance: VINCRISTINE
     Indication: Follicular lymphoma
     Dosage: R-CHOP , 6 CYCLES WITH CR
     Route: 065
     Dates: start: 2011
  5. PREDNISONE [Suspect]
     Active Substance: PREDNISONE
     Indication: Follicular lymphoma
     Dosage: R-CHOP , 6 CYCLES WITH CR
     Route: 065
     Dates: start: 2011
  6. OBINUTUZUMAB [Suspect]
     Active Substance: OBINUTUZUMAB
     Indication: Follicular lymphoma
     Dosage: UNK
     Route: 065
     Dates: start: 2019
  7. IDASANUTLIN [Suspect]
     Active Substance: IDASANUTLIN
     Indication: Follicular lymphoma
     Dosage: UNK
     Route: 065
     Dates: start: 2019
  8. VENETOCLAX [Suspect]
     Active Substance: VENETOCLAX
     Indication: Follicular lymphoma
     Dosage: UNK
     Route: 065
     Dates: start: 2019

REACTIONS (2)
  - Follicular lymphoma [Unknown]
  - Disease progression [Unknown]

NARRATIVE: CASE EVENT DATE: 20220101
